FAERS Safety Report 24559860 (Version 1)
Quarter: 2024Q4

REPORT INFORMATION
  Report Type: Spontaneous
  Country: US (occurrence: US)
  Receive Date: 20241029
  Receipt Date: 20241029
  Transmission Date: 20250114
  Serious: Yes (Other)
  Sender: CHEPLAPHARM
  Company Number: US-CHEPLA-2024013439

PATIENT
  Sex: Female

DRUGS (15)
  1. CLONAZEPAM [Suspect]
     Active Substance: CLONAZEPAM
     Indication: Panic attack
  2. CLONAZEPAM [Suspect]
     Active Substance: CLONAZEPAM
     Indication: Muscle spasms
  3. VITAMIN D [Concomitant]
     Active Substance: VITAMIN D NOS
  4. OCREVUS [Concomitant]
     Active Substance: OCRELIZUMAB
  5. MIDODRINE [Concomitant]
     Active Substance: MIDODRINE
  6. GABAPENTIN [Concomitant]
     Active Substance: GABAPENTIN
  7. ESTRADIOL [Concomitant]
     Active Substance: ESTRADIOL
  8. CETIRIZINE HYDROCHLORIDE [Concomitant]
     Active Substance: CETIRIZINE HYDROCHLORIDE
  9. FAMOTIDINE [Concomitant]
     Active Substance: FAMOTIDINE
  10. MAGNESIUM [Concomitant]
     Active Substance: MAGNESIUM
  11. POTASSIUM [Concomitant]
     Active Substance: POTASSIUM
  12. BACLOFEN [Concomitant]
     Active Substance: BACLOFEN
  13. LIOTHYRONINE [Concomitant]
     Active Substance: LIOTHYRONINE
  14. AUSTEDO [Concomitant]
     Active Substance: DEUTETRABENAZINE
  15. ABILIFY [Concomitant]
     Active Substance: ARIPIPRAZOLE

REACTIONS (6)
  - Intestinal obstruction [Unknown]
  - Anaphylactic reaction [Unknown]
  - Tardive dyskinesia [Unknown]
  - Stoma complication [Unknown]
  - Weight decreased [Unknown]
  - Muscle spasms [Unknown]
